FAERS Safety Report 6436942-5 (Version None)
Quarter: 2009Q4

REPORT INFORMATION
  Report Type: 
  Country: None (occurrence: None)
  Receive Date: 20091111
  Receipt Date: 20091030
  Transmission Date: 20100525
  Serious: Yes (Other)
  Sender: FDA-Public Use
  Company Number: US-JNJCH-2009028915

PATIENT
  Age: 3 Year
  Sex: Female
  Weight: 14.5 kg

DRUGS (1)
  1. BENADRYL [Suspect]
     Indication: DRUG HYPERSENSITIVITY
     Dosage: TEXT:^AS DIRECTED^ SIX TIMES PER DAY
     Route: 048

REACTIONS (3)
  - HAEMATEMESIS [None]
  - OFF LABEL USE [None]
  - WRONG DRUG ADMINISTERED [None]
